FAERS Safety Report 12388459 (Version 1)
Quarter: 2016Q2

REPORT INFORMATION
  Report Type: Spontaneous
  Country: GB (occurrence: GB)
  Receive Date: 20160520
  Receipt Date: 20160520
  Transmission Date: 20160815
  Serious: Yes (Other)
  Sender: FDA-Public Use
  Company Number: GB-BAYER-2016-093796

PATIENT
  Age: 30 Year
  Sex: Male
  Weight: 62 kg

DRUGS (11)
  1. MOVICOL [Concomitant]
     Active Substance: POLYETHYLENE GLYCOL 3350\POTASSIUM CHLORIDE\SODIUM BICARBONATE\SODIUM CHLORIDE
     Dosage: UNK
     Dates: start: 20151222
  2. PHENYTOIN. [Concomitant]
     Active Substance: PHENYTOIN
     Dosage: 50 ML, QD
     Dates: start: 20151222
  3. ACETYLSALICYLIC ACID (} 100 MG) [Suspect]
     Active Substance: ASPIRIN
     Dosage: UNK
     Dates: start: 20160322
  4. CIPROFLOXACIN. [Concomitant]
     Active Substance: CIPROFLOXACIN
     Dosage: 10 ML, BID
     Dates: start: 20160415, end: 20160420
  5. MIDAZOLAM [Concomitant]
     Active Substance: MIDAZOLAM\MIDAZOLAM HYDROCHLORIDE
     Dosage: 1 ML, UNK
     Route: 002
     Dates: start: 20150604
  6. CETIRIZINE [Concomitant]
     Active Substance: CETIRIZINE HYDROCHLORIDE
     Dosage: 10 ML, QD
     Dates: start: 20151222
  7. EPILIM [Concomitant]
     Active Substance: VALPROATE SODIUM
     Dosage: 12.5 ML, QID
     Dates: start: 20151222
  8. LEVETIRACETAM. [Concomitant]
     Active Substance: LEVETIRACETAM
     Dosage: 15 ML, BID
     Dates: start: 20151222
  9. INTAL [Concomitant]
     Active Substance: CROMOLYN SODIUM
     Indication: SEASONAL ALLERGY
     Dosage: 1 GTT,4 PRN
     Dates: start: 20151222
  10. CONOTRANE [Concomitant]
     Dosage: UNK UNK, PRN
     Dates: start: 20151222
  11. PARACETAMOL [Concomitant]
     Active Substance: ACETAMINOPHEN
     Dosage: UNK UNK, PRN
     Dates: start: 20160407, end: 20160505

REACTIONS (2)
  - Drug hypersensitivity [Unknown]
  - Malaise [Unknown]

NARRATIVE: CASE EVENT DATE: 20160505
